FAERS Safety Report 7878323-3 (Version None)
Quarter: 2011Q4

REPORT INFORMATION
  Report Type: 
  Country: None (occurrence: None)
  Receive Date: 20111101
  Receipt Date: 20111021
  Transmission Date: 20120403
  Serious: No
  Sender: FDA-Public Use
  Company Number: US-BRISTOL-MYERS SQUIBB COMPANY-16038465

PATIENT
  Age: 41 Year
  Sex: Female
  Weight: 45 kg

DRUGS (4)
  1. LYRICA [Suspect]
     Dates: start: 20110408
  2. CYMBALTA [Concomitant]
  3. KENALOG-40 [Suspect]
     Indication: BURSITIS
     Dosage: ROUTR: BURSA INJECTION.28APR11
     Dates: start: 20110408
  4. ESTROGEN PATCH [Concomitant]

REACTIONS (6)
  - INJECTION SITE REACTION [None]
  - NIGHT SWEATS [None]
  - MOOD SWINGS [None]
  - INCREASED APPETITE [None]
  - MUSCLE SPASMS [None]
  - INSOMNIA [None]
